FAERS Safety Report 24572894 (Version 1)
Quarter: 2024Q4

REPORT INFORMATION
  Report Type: Spontaneous
  Country: US (occurrence: US)
  Receive Date: 20241101
  Receipt Date: 20241101
  Transmission Date: 20250115
  Serious: No
  Sender: Tarsus Pharmaceuticals
  Company Number: US-TARSUS PHARMACEUTICALS-TSP-US-2024-000404

PATIENT
  Age: 73 Year
  Sex: Female

DRUGS (1)
  1. XDEMVY [Suspect]
     Active Substance: LOTILANER
     Indication: Product used for unknown indication
     Dosage: 1 DROP, BID (INTO EACH EYE)
     Route: 047
     Dates: start: 20240827, end: 20240831

REACTIONS (5)
  - Eye pain [Unknown]
  - Eye irritation [Unknown]
  - Erythema [Unknown]
  - Chemical burn of skin [Unknown]
  - Eye discharge [Unknown]

NARRATIVE: CASE EVENT DATE: 20240801
